FAERS Safety Report 5768879-9 (Version None)
Quarter: 2008Q2

REPORT INFORMATION
  Report Type: 
  Country: None (occurrence: None)
  Receive Date: 20080612
  Receipt Date: 20080314
  Transmission Date: 20081010
  Serious: No
  Sender: FDA-Public Use
  Company Number: US-ABBOTT-08P-163-0442651-00

PATIENT
  Sex: Male
  Weight: 77.18 kg

DRUGS (2)
  1. HUMIRA [Suspect]
     Indication: PSORIATIC ARTHROPATHY
     Route: 058
     Dates: start: 20060101, end: 20080115
  2. HUMIRA [Suspect]
     Route: 058
     Dates: start: 20080201

REACTIONS (1)
  - INFLUENZA [None]
